FAERS Safety Report 25174738 (Version 1)
Quarter: 2025Q2

REPORT INFORMATION
  Report Type: Other
  Country: IT (occurrence: None)
  Receive Date: 20250408
  Receipt Date: 20250408
  Transmission Date: 20250716
  Serious: Yes (Other)
  Sender: INCYTE
  Company Number: None

PATIENT
  Age: 87 Year

DRUGS (1)
  1. RUXOLITINIB [Suspect]
     Active Substance: RUXOLITINIB
     Indication: Primary myelofibrosis

REACTIONS (1)
  - Actinic keratosis [Not Recovered/Not Resolved]
